FAERS Safety Report 12451293 (Version 1)
Quarter: 2016Q2

REPORT INFORMATION
  Report Type: Spontaneous
  Country: DE (occurrence: DE)
  Receive Date: 20160609
  Receipt Date: 20160609
  Transmission Date: 20160815
  Serious: Yes (Life-Threatening)
  Sender: FDA-Public Use
  Company Number: DE-JNJFOC-20160604296

PATIENT
  Age: 68 Year
  Sex: Male

DRUGS (9)
  1. GRANISETRON [Concomitant]
     Active Substance: GRANISETRON
     Dosage: 2 MG, PRN
     Route: 048
  2. XARELTO [Suspect]
     Active Substance: RIVAROXABAN
     Indication: PULMONARY EMBOLISM
     Route: 048
     Dates: start: 20151216
  3. ABSTRAL [Concomitant]
     Active Substance: FENTANYL CITRATE
     Route: 065
  4. CLEXANE [Concomitant]
     Active Substance: ENOXAPARIN SODIUM
     Route: 058
  5. METOCLOPRAMIDE. [Concomitant]
     Active Substance: METOCLOPRAMIDE
     Route: 048
  6. DUROGESIC [Concomitant]
     Active Substance: FENTANYL
     Dosage: 75 MCG/H EVERY THIRD DAY, 1 PLASTER
     Route: 065
  7. VOMACUR [Concomitant]
     Route: 054
  8. ALLOPURINOL. [Concomitant]
     Active Substance: ALLOPURINOL
     Route: 048
  9. PANTOPRAZOLE [Concomitant]
     Active Substance: PANTOPRAZOLE SODIUM
     Route: 048

REACTIONS (2)
  - Atelectasis [Not Recovered/Not Resolved]
  - Pneumonia [Recovered/Resolved with Sequelae]

NARRATIVE: CASE EVENT DATE: 20151217
